FAERS Safety Report 23182247 (Version 1)
Quarter: 2023Q4

REPORT INFORMATION
  Report Type: Spontaneous
  Country: US (occurrence: None)
  Receive Date: 20231114
  Receipt Date: 20231114
  Transmission Date: 20240110
  Serious: Yes (Other)
  Sender: FDA-Public Use
  Company Number: 2023A253163

PATIENT
  Age: 47 Year
  Sex: Female

DRUGS (11)
  1. OSIMERTINIB [Suspect]
     Active Substance: OSIMERTINIB
     Indication: Lung adenocarcinoma stage III
     Dosage: OSIMERTINIB ALONE
     Route: 048
     Dates: start: 20190417, end: 20200520
  2. OSIMERTINIB [Suspect]
     Active Substance: OSIMERTINIB
     Indication: Metastases to central nervous system
     Dosage: OSIMERTINIB ALONE
     Route: 048
     Dates: start: 20190417, end: 20200520
  3. OSIMERTINIB [Suspect]
     Active Substance: OSIMERTINIB
     Indication: Lung adenocarcinoma stage III
     Dosage: OSIMERTINIB WITH CRIZOTINIB
     Route: 048
     Dates: start: 20200520, end: 20200918
  4. OSIMERTINIB [Suspect]
     Active Substance: OSIMERTINIB
     Indication: Metastases to central nervous system
     Dosage: OSIMERTINIB WITH CRIZOTINIB
     Route: 048
     Dates: start: 20200520, end: 20200918
  5. OSIMERTINIB [Suspect]
     Active Substance: OSIMERTINIB
     Indication: Lung adenocarcinoma stage III
     Dosage: OSIMERTINIB WITH CAPMATINIB
     Route: 048
     Dates: start: 20200918, end: 20210609
  6. OSIMERTINIB [Suspect]
     Active Substance: OSIMERTINIB
     Indication: Metastases to central nervous system
     Dosage: OSIMERTINIB WITH CAPMATINIB
     Route: 048
     Dates: start: 20200918, end: 20210609
  7. OSIMERTINIB [Suspect]
     Active Substance: OSIMERTINIB
     Indication: Lung adenocarcinoma stage III
     Dosage: OSIMERTINIB WITH CABOZANTINIB
     Route: 048
     Dates: start: 20210623, end: 20210723
  8. OSIMERTINIB [Suspect]
     Active Substance: OSIMERTINIB
     Indication: Metastases to central nervous system
     Dosage: OSIMERTINIB WITH CABOZANTINIB
     Route: 048
     Dates: start: 20210623, end: 20210723
  9. CRIZOTINIB [Suspect]
     Active Substance: CRIZOTINIB
     Indication: Lung adenocarcinoma stage III
     Dates: start: 20200520, end: 20200918
  10. CAPMATINIB [Suspect]
     Active Substance: CAPMATINIB
     Indication: Lung adenocarcinoma stage III
     Dates: start: 20200918, end: 20210609
  11. CABOZANTINIB [Suspect]
     Active Substance: CABOZANTINIB
     Indication: Lung adenocarcinoma stage III
     Dates: start: 20210623, end: 20210723

REACTIONS (5)
  - Acquired gene mutation [Unknown]
  - Drug resistance [Unknown]
  - Malignant neoplasm progression [Unknown]
  - Diarrhoea [Recovered/Resolved]
  - Fatigue [Recovered/Resolved]

NARRATIVE: CASE EVENT DATE: 20200520
